FAERS Safety Report 17116393 (Version 1)
Quarter: 2019Q4

REPORT INFORMATION
  Report Type: Report from Study
  Country: ES (occurrence: ES)
  Receive Date: 20191205
  Receipt Date: 20191205
  Transmission Date: 20200122
  Serious: Yes (Other)
  Sender: FDA-Public Use
  Company Number: ES-MYLANLABS-2019M1118956

PATIENT
  Age: 82 Year
  Sex: Female

DRUGS (11)
  1. FERROSANOL [Concomitant]
     Active Substance: FERROUS GLUCONATE
     Dosage: UNK
  2. UNIKET [Concomitant]
     Active Substance: ISOSORBIDE MONONITRATE
     Dosage: 1-1-1
     Route: 048
     Dates: start: 2003
  3. FUROSEMIDE. [Suspect]
     Active Substance: FUROSEMIDE
     Indication: CARDIAC FAILURE
     Dosage: 1-0-0
     Route: 048
     Dates: start: 20180117
  4. CARDYL [Concomitant]
     Active Substance: ATORVASTATIN CALCIUM
     Dosage: 0-0-1
     Route: 048
     Dates: start: 2011
  5. EMCONCOR COR [Concomitant]
     Active Substance: BISOPROLOL
     Dosage: 1-0-0
     Route: 048
     Dates: start: 2012
  6. OMEPRAZOL                          /00661201/ [Concomitant]
     Active Substance: OMEPRAZOLE
     Dosage: UNK
  7. SEGURIL [Suspect]
     Active Substance: FUROSEMIDE
     Indication: CARDIAC FAILURE
     Dosage: DESCONOCIDA
     Route: 042
     Dates: start: 2018
  8. NOVOMIX [Concomitant]
     Active Substance: INSULIN ASPART
     Dosage: UNK
  9. ELIQUIS [Concomitant]
     Active Substance: APIXABAN
     Dosage: 1-0-1
     Route: 048
     Dates: start: 20180118
  10. CAFINITRINA                        /00702101/ [Concomitant]
     Active Substance: CAFFEINE CITRATE\NITROGLYCERIN\PHENOBARBITAL
     Dosage: UNK
  11. ORFIDAL [Concomitant]
     Active Substance: LORAZEPAM
     Dosage: UNK

REACTIONS (1)
  - Chronic kidney disease [Recovered/Resolved]

NARRATIVE: CASE EVENT DATE: 20180720
